FAERS Safety Report 12899614 (Version 1)
Quarter: 2016Q4

REPORT INFORMATION
  Report Type: Spontaneous
  Country: US (occurrence: US)
  Receive Date: 20161101
  Receipt Date: 20161101
  Transmission Date: 20170207
  Serious: No
  Sender: FDA-Public Use
  Company Number: US-GLAXOSMITHKLINE-US2016158895

PATIENT
  Sex: Female

DRUGS (1)
  1. VOLTAREN [Suspect]
     Active Substance: DICLOFENAC SODIUM
     Indication: ARTERIOSCLEROSIS
     Dosage: UNK
     Dates: start: 201610, end: 201610

REACTIONS (3)
  - Condition aggravated [Unknown]
  - Off label use [Unknown]
  - Skin ulcer [Unknown]

NARRATIVE: CASE EVENT DATE: 201610
